FAERS Safety Report 15366462 (Version 3)
Quarter: 2018Q3

REPORT INFORMATION
  Report Type: Spontaneous
  Country: US (occurrence: US)
  Receive Date: 20180910
  Receipt Date: 20180914
  Transmission Date: 20181010
  Serious: No
  Sender: FDA-Public Use
  Company Number: US-SA-2018SA253373

PATIENT
  Age: 48 Year
  Sex: Male

DRUGS (1)
  1. DUPIXENT [Suspect]
     Active Substance: DUPILUMAB
     Indication: DERMATITIS ATOPIC
     Dosage: 300 MG, QOW
     Route: 058
     Dates: start: 20180216

REACTIONS (4)
  - Photosensitivity reaction [Unknown]
  - Visual impairment [Unknown]
  - Pain in extremity [Unknown]
  - Eye infection [Unknown]

NARRATIVE: CASE EVENT DATE: 201808
